FAERS Safety Report 18298755 (Version 2)
Quarter: 2020Q4

REPORT INFORMATION
  Report Type: Spontaneous
  Country: IT (occurrence: IT)
  Receive Date: 20200923
  Receipt Date: 20201102
  Transmission Date: 20210113
  Serious: Yes (Other)
  Sender: FDA-Public Use
  Company Number: IT-SUN PHARMACEUTICAL INDUSTRIES LTD-2020RR-261426

PATIENT
  Age: 33 Year
  Sex: Male

DRUGS (7)
  1. ADVAGRAF [Suspect]
     Active Substance: TACROLIMUS
     Indication: IMMUNOSUPPRESSANT DRUG THERAPY
     Dosage: 0.12 MG/KG/DAY (TARGET: 8-10 NG/ML DURING THE FIRST MONTH AND 5-6 NG/ML AFTER)
     Route: 065
  2. BASILIXIMAB [Suspect]
     Active Substance: BASILIXIMAB
     Indication: IMMUNOSUPPRESSANT DRUG THERAPY
     Dosage: UNK
     Route: 065
  3. PENTAMIDINE [Concomitant]
     Active Substance: PENTAMIDINE
     Indication: ANTIFUNGAL PROPHYLAXIS
     Dosage: PER AEROSOL INHALATION ONCE A MONTH
  4. EVEROLIMUS. [Suspect]
     Active Substance: EVEROLIMUS
     Indication: IMMUNOSUPPRESSANT DRUG THERAPY
     Dosage: 1.25 MG BID (TARGET, 6-8 NG/ML DURING THE FIRST MONTH AND 3-5 NG/ML AFTER)
     Route: 065
  5. SOLU-MEDROL [Suspect]
     Active Substance: METHYLPREDNISOLONE SODIUM SUCCINATE
     Indication: IMMUNOSUPPRESSANT DRUG THERAPY
     Dosage: 500 MILLIGRAM, UNK
     Route: 042
  6. DELTACORTENE [Suspect]
     Active Substance: PREDNISONE
     Indication: IMMUNOSUPPRESSANT DRUG THERAPY
     Dosage: 20 MILLIGRAM, DAILY
     Route: 065
  7. ACICLIN [Suspect]
     Active Substance: ACYCLOVIR
     Indication: EPSTEIN-BARR VIRAEMIA
     Dosage: 800 MILLIGRAM, BID
     Route: 048

REACTIONS (5)
  - Mycoplasma test positive [Unknown]
  - Epstein-Barr virus infection [Recovered/Resolved]
  - Parvovirus B19 infection [Recovered/Resolved]
  - Acute kidney injury [Unknown]
  - Drug ineffective [Unknown]
